FAERS Safety Report 10550267 (Version 2)
Quarter: 2014Q4

REPORT INFORMATION
  Report Type: Spontaneous
  Country: AT (occurrence: AT)
  Receive Date: 20141029
  Receipt Date: 20141222
  Transmission Date: 20150529
  Serious: Yes (Hospitalization)
  Sender: FDA-Public Use
  Company Number: AT-ROCHE-1479796

PATIENT
  Age: 52 Year
  Sex: Female

DRUGS (17)
  1. SEROQUEL [Suspect]
     Active Substance: QUETIAPINE FUMARATE
     Route: 065
     Dates: start: 20140205, end: 20140211
  2. SAROTEN RETARD [Suspect]
     Active Substance: AMITRIPTYLINE
     Route: 048
     Dates: start: 20140205, end: 20140213
  3. DEPAKINE CHRONO [Suspect]
     Active Substance: VALPROATE SODIUM
     Route: 048
     Dates: start: 20140214, end: 20140218
  4. HYDAL [Suspect]
     Active Substance: HYDROMORPHONE HYDROCHLORIDE
     Indication: PRODUCT USED FOR UNKNOWN INDICATION
     Route: 048
     Dates: start: 20140203, end: 20140213
  5. SEROQUEL [Suspect]
     Active Substance: QUETIAPINE FUMARATE
     Indication: PRODUCT USED FOR UNKNOWN INDICATION
     Route: 048
     Dates: start: 20140203, end: 20140205
  6. LYRICA [Suspect]
     Active Substance: PREGABALIN
     Route: 048
     Dates: start: 20140205, end: 20140214
  7. DEPAKINE CHRONO [Suspect]
     Active Substance: VALPROATE SODIUM
     Indication: PRODUCT USED FOR UNKNOWN INDICATION
     Route: 048
     Dates: start: 20140203, end: 20140205
  8. LYRICA [Suspect]
     Active Substance: PREGABALIN
     Indication: PRODUCT USED FOR UNKNOWN INDICATION
     Route: 048
     Dates: start: 20140203, end: 20140205
  9. RISPERDAL [Concomitant]
     Active Substance: RISPERIDONE
     Route: 065
  10. SUBSTITOL [Concomitant]
     Active Substance: MORPHINE SULFATE
  11. SAROTEN RETARD [Suspect]
     Active Substance: AMITRIPTYLINE
     Route: 048
     Dates: start: 20140213, end: 20140215
  12. DEPAKINE CHRONO [Suspect]
     Active Substance: VALPROATE SODIUM
     Route: 048
     Dates: start: 20140205, end: 20140209
  13. DEPAKINE CHRONO [Suspect]
     Active Substance: VALPROATE SODIUM
     Route: 048
     Dates: start: 20140209, end: 20140214
  14. MUNDIDOL RETARD [Concomitant]
     Route: 065
  15. SAROTEN RETARD [Suspect]
     Active Substance: AMITRIPTYLINE
     Indication: PRODUCT USED FOR UNKNOWN INDICATION
     Route: 048
     Dates: start: 20140203, end: 20140205
  16. RIVOTRIL [Suspect]
     Active Substance: CLONAZEPAM
     Indication: PRODUCT USED FOR UNKNOWN INDICATION
     Route: 048
     Dates: start: 20140203, end: 20140214
  17. LYRICA [Suspect]
     Active Substance: PREGABALIN
     Route: 048
     Dates: start: 20140214, end: 20140218

REACTIONS (1)
  - Delirium [Recovered/Resolved]

NARRATIVE: CASE EVENT DATE: 20140206
